FAERS Safety Report 7226536-6 (Version None)
Quarter: 2011Q1

REPORT INFORMATION
  Report Type: 
  Country: None (occurrence: None)
  Receive Date: 20110114
  Receipt Date: 20101231
  Transmission Date: 20110831
  Serious: Yes (Disabling, Other)
  Sender: FDA-Public Use
  Company Number: US-CELGENEUS-163-21880-10113248

PATIENT
  Sex: Male

DRUGS (14)
  1. OXYCODONE [Concomitant]
     Route: 048
     Dates: start: 20101110
  2. FLORINEF [Concomitant]
     Route: 065
  3. ATORVASTATIN CALCIUM [Concomitant]
     Route: 048
     Dates: start: 20080330
  4. AMITRIPTYLINE HYDROCHLORIDE [Concomitant]
     Route: 048
     Dates: start: 20100325
  5. REVLIMID [Suspect]
     Indication: AMYLOIDOSIS
     Route: 048
     Dates: start: 20101112, end: 20101125
  6. OMEPRAZOLE [Concomitant]
     Route: 065
  7. LEVOTHYROXINE [Concomitant]
     Route: 048
     Dates: start: 20080924
  8. VITAMIN D [Concomitant]
     Route: 048
     Dates: start: 20100318
  9. ASPIRIN [Concomitant]
     Route: 048
     Dates: start: 20090623
  10. CALCIUM [Concomitant]
     Route: 048
     Dates: start: 20100318
  11. REVLIMID [Suspect]
     Indication: MULTIPLE MYELOMA
     Route: 048
     Dates: start: 20090501, end: 20090101
  12. TYLENOL-500 [Concomitant]
     Route: 065
  13. ASPIRIN [Concomitant]
     Route: 048
     Dates: start: 20100318
  14. DEXAMETHASONE [Concomitant]
     Route: 048
     Dates: start: 20101112

REACTIONS (6)
  - KERATITIS [None]
  - NEUROPATHY PERIPHERAL [None]
  - SYNCOPE [None]
  - ANAEMIA [None]
  - RENAL IMPAIRMENT [None]
  - ORTHOSTATIC HYPOTENSION [None]
